FAERS Safety Report 8276105-4 (Version None)
Quarter: 2012Q2

REPORT INFORMATION
  Report Type: 
  Country: None (occurrence: None)
  Receive Date: 20120406
  Receipt Date: 20120329
  Transmission Date: 20120825
  Serious: Yes (Hospitalization, Other)
  Sender: FDA-Public Use
  Company Number: 2012SP017245

PATIENT
  Sex: Male

DRUGS (4)
  1. RIBAVIRIN [Suspect]
     Indication: HEPATITIS C
     Dates: start: 20120317
  2. TELAPREVIR [Suspect]
     Indication: HEPATITIS C
     Dates: start: 20120317
  3. INCIVEK [Suspect]
     Dates: start: 20120317
  4. PEG-INTRON [Suspect]
     Indication: HEPATITIS C
     Dates: start: 20120316

REACTIONS (1)
  - CLOSTRIDIUM DIFFICILE COLITIS [None]
